FAERS Safety Report 4518363-5 (Version None)
Quarter: 2004Q4

REPORT INFORMATION
  Report Type: 
  Country: None (occurrence: None)
  Receive Date: 20041202
  Receipt Date: 20041119
  Transmission Date: 20050328
  Serious: Yes (Other)
  Sender: FDA-Public Use
  Company Number: 2004098393

PATIENT
  Sex: Female

DRUGS (2)
  1. LATANOPROST [Suspect]
     Indication: ILL-DEFINED DISORDER
     Dosage: OPHTHALMIC
     Route: 047
  2. ANALGESIC BALM (MENTHOL, METHYL SALICYLATE) [Concomitant]

REACTIONS (2)
  - ASTHMA [None]
  - EMPHYSEMA [None]
